FAERS Safety Report 22362054 (Version 6)
Quarter: 2025Q2

REPORT INFORMATION
  Report Type: Spontaneous
  Country: IN (occurrence: IN)
  Receive Date: 20230524
  Receipt Date: 20250506
  Transmission Date: 20250716
  Serious: Yes (Other)
  Sender: PFIZER
  Company Number: IN-PFIZER INC-2019107615

PATIENT
  Age: 69 Year
  Sex: Female
  Weight: 71.8 kg

DRUGS (7)
  1. PALBOCICLIB [Suspect]
     Active Substance: PALBOCICLIB
     Indication: Breast cancer metastatic
     Dosage: 125 MG, 1X/DAY (DAY 1 TO DAY 21 THEN 1 WEEK OFF)
     Route: 048
     Dates: start: 20190105
  2. PALBOCICLIB [Suspect]
     Active Substance: PALBOCICLIB
     Dosage: 125 MG, 1X/DAY
     Route: 048
  3. PALBOCICLIB [Suspect]
     Active Substance: PALBOCICLIB
     Route: 048
  4. FULVESTRANT [Concomitant]
     Active Substance: FULVESTRANT
     Dates: start: 20190108
  5. FULVESTRANT [Concomitant]
     Active Substance: FULVESTRANT
     Dosage: 500 MG, MONTHLY (250 MG BOTH BUTTOCKS)
     Route: 030
  6. CALCIMAX [CALCIUM CITRATE] [Concomitant]
     Indication: Mineral supplementation
     Dosage: UNK UNK, 1X/DAY
  7. SUPRADYN ACTIVE [Concomitant]
     Dosage: UNK UNK, 1X/DAY

REACTIONS (23)
  - Leukopenia [Unknown]
  - Breast cancer metastatic [Unknown]
  - Malignant neoplasm progression [Unknown]
  - Metastases to lung [Unknown]
  - Cardiac disorder [Unknown]
  - Second primary malignancy [Unknown]
  - Cardiac myxoma [Unknown]
  - Metastases to heart [Unknown]
  - Blood pressure increased [Not Recovered/Not Resolved]
  - Pain in extremity [Unknown]
  - Arthralgia [Unknown]
  - Fatigue [Not Recovered/Not Resolved]
  - Anxiety [Unknown]
  - Nasopharyngitis [Unknown]
  - Sinus disorder [Unknown]
  - Mouth ulceration [Unknown]
  - Somnolence [Unknown]
  - Full blood count abnormal [Not Recovered/Not Resolved]
  - Stomatitis [Not Recovered/Not Resolved]
  - Food intolerance [Unknown]
  - Dyspnoea exertional [Unknown]
  - Weight decreased [Unknown]
  - Off label use [Unknown]

NARRATIVE: CASE EVENT DATE: 20250412
